FAERS Safety Report 7773703-9 (Version None)
Quarter: 2011Q3

REPORT INFORMATION
  Report Type: 
  Country: None (occurrence: None)
  Receive Date: 20110920
  Receipt Date: 20110912
  Transmission Date: 20111222
  Serious: No
  Sender: FDA-Public Use
  Company Number: CCC100999

PATIENT
  Sex: Female
  Weight: 52.1637 kg

DRUGS (1)
  1. EPINASTINE HYDROCHLORIDE [Suspect]
     Indication: CONJUNCTIVITIS ALLERGIC
     Dosage: 1 DROP/EYE ONCE/DAY
     Route: 047
     Dates: start: 20110801

REACTIONS (3)
  - OCULAR HYPERAEMIA [None]
  - EYE OEDEMA [None]
  - LACRIMATION INCREASED [None]
